FAERS Safety Report 10247928 (Version 2)
Quarter: 2016Q1

REPORT INFORMATION
  Report Type: Spontaneous
  Country: FR (occurrence: FR)
  Receive Date: 20140619
  Receipt Date: 20160113
  Transmission Date: 20160525
  Serious: Yes (Other)
  Sender: FDA-Public Use
  Company Number: FR-TAKEDA-2014MPI001678

PATIENT

DRUGS (10)
  1. DEXAMETHASONE. [Suspect]
     Active Substance: DEXAMETHASONE
     Indication: PLASMACYTOMA
     Dosage: 4 MG, UNK
     Route: 065
     Dates: start: 20101104, end: 20110513
  2. LENALIDOMIDE [Suspect]
     Active Substance: LENALIDOMIDE
     Indication: PLASMACYTOMA
     Dosage: 25 MG, QD
     Route: 065
     Dates: start: 20110107, end: 20110513
  3. ISONIAZID. [Suspect]
     Active Substance: ISONIAZID
     Indication: LATENT TUBERCULOSIS
     Dosage: 300 MG, QD
     Route: 065
     Dates: start: 20101203, end: 20110223
  4. VELCADE [Interacting]
     Active Substance: BORTEZOMIB
     Indication: MONOCLONAL GAMMOPATHY
  5. DOXORUBICIN [Suspect]
     Active Substance: DOXORUBICIN
     Indication: PLASMACYTOMA
     Dosage: 30 MG/M2, UNK
     Route: 065
     Dates: start: 20101104, end: 20110513
  6. DOXORUBICIN [Suspect]
     Active Substance: DOXORUBICIN
     Indication: MONOCLONAL GAMMOPATHY
  7. LENALIDOMIDE [Suspect]
     Active Substance: LENALIDOMIDE
     Indication: MONOCLONAL GAMMOPATHY
  8. DEXAMETHASONE. [Suspect]
     Active Substance: DEXAMETHASONE
     Indication: MONOCLONAL GAMMOPATHY
  9. VELCADE [Interacting]
     Active Substance: BORTEZOMIB
     Indication: PLASMACYTOMA
     Dosage: 1.3 MG/M2, UNK
     Route: 042
     Dates: start: 20101104, end: 20110513
  10. RIFAMPICINE [Interacting]
     Active Substance: RIFAMPIN
     Indication: LATENT TUBERCULOSIS
     Dosage: 600 MG, QD
     Route: 065
     Dates: start: 20101203, end: 20110223

REACTIONS (4)
  - Drug interaction [Unknown]
  - Gamma-glutamyltransferase increased [Unknown]
  - Latent tuberculosis [Unknown]
  - Transaminases increased [Unknown]
